FAERS Safety Report 5746305-3 (Version None)
Quarter: 2008Q2

REPORT INFORMATION
  Report Type: 
  Country: None (occurrence: None)
  Receive Date: 20080520
  Receipt Date: 20080507
  Transmission Date: 20081010
  Serious: Yes (Hospitalization)
  Sender: FDA-Public Use
  Company Number: 2008BI011952

PATIENT
  Age: 44 Year
  Sex: Female

DRUGS (1)
  1. TYSABRI [Suspect]
     Indication: MULTIPLE SCLEROSIS
     Dosage: 300 MG;QM;IV
     Route: 042

REACTIONS (1)
  - FEMORAL NECK FRACTURE [None]
